FAERS Safety Report 7644203-1 (Version None)
Quarter: 2011Q3

REPORT INFORMATION
  Report Type: 
  Country: None (occurrence: None)
  Receive Date: 20110729
  Receipt Date: 20110722
  Transmission Date: 20111222
  Serious: Yes (Other)
  Sender: FDA-Public Use
  Company Number: RO-TEVA-291845ISR

PATIENT
  Age: 15 Year
  Sex: Female

DRUGS (2)
  1. LEUCOVORIN CALCIUM [Suspect]
     Indication: CEREBRAL TOXOPLASMOSIS
  2. PYRIMETHAMINE W/SULFADOXINE [Suspect]
     Indication: CEREBRAL TOXOPLASMOSIS

REACTIONS (1)
  - STEVENS-JOHNSON SYNDROME [None]
